FAERS Safety Report 9790833 (Version 2)
Quarter: 2014Q1

REPORT INFORMATION
  Report Type: Report from Study
  Country: JP (occurrence: JP)
  Receive Date: 20131231
  Receipt Date: 20140306
  Transmission Date: 20141002
  Serious: Yes (Other)
  Sender: FDA-Public Use
  Company Number: PHHY2013JP153209

PATIENT
  Age: 83 Year
  Sex: Female
  Weight: 48 kg

DRUGS (2)
  1. EXELON [Suspect]
     Indication: DEMENTIA ALZHEIMER^S TYPE
     Dosage: 4.5 MG DAILY
     Route: 062
     Dates: start: 20120919, end: 20121018
  2. EXELON [Suspect]
     Dosage: 9 MG DAILY
     Route: 062
     Dates: start: 20121019, end: 20130131

REACTIONS (2)
  - Fracture [Recovered/Resolved]
  - Fall [Unknown]
